FAERS Safety Report 6183191-4 (Version None)
Quarter: 2009Q2

REPORT INFORMATION
  Report Type: 
  Country: None (occurrence: None)
  Receive Date: 20090506
  Receipt Date: 20090427
  Transmission Date: 20091009
  Serious: Yes (Other)
  Sender: FDA-Public Use
  Company Number: 2009AP001692

PATIENT
  Age: 64 Year
  Sex: Male

DRUGS (1)
  1. AMLODIPINE BESYLATE [Suspect]
     Indication: HYPERTENSION
     Dosage: 10 MG, PO
     Route: 048
     Dates: start: 20090313, end: 20090317

REACTIONS (3)
  - ECZEMA ASTEATOTIC [None]
  - ERYTHEMA [None]
  - PHOTOSENSITIVITY REACTION [None]
